FAERS Safety Report 11893640 (Version 2)
Quarter: 2016Q1

REPORT INFORMATION
  Report Type: Spontaneous
  Country: US (occurrence: US)
  Receive Date: 20160106
  Receipt Date: 20160114
  Transmission Date: 20160526
  Serious: Yes (Hospitalization, Other)
  Sender: FDA-Public Use
  Company Number: US-GILEAD-2016-0191094

PATIENT
  Age: 43 Year
  Sex: Male
  Weight: 79 kg

DRUGS (16)
  1. MERCAPTOPURINE. [Concomitant]
     Active Substance: MERCAPTOPURINE
  2. ALBUTEROL                          /00139501/ [Concomitant]
     Active Substance: ALBUTEROL
     Indication: DYSPNOEA
  3. TRETINOIN. [Concomitant]
     Active Substance: TRETINOIN
  4. DAKLINZA [Concomitant]
     Active Substance: DACLATASVIR
     Indication: HEPATITIS C
     Dosage: UNK
     Dates: start: 20151119, end: 20160104
  5. ALPRAZOLAM. [Concomitant]
     Active Substance: ALPRAZOLAM
     Indication: ANXIETY
  6. CYCLOBENZAPRINE [Concomitant]
     Active Substance: CYCLOBENZAPRINE
     Indication: MUSCLE SPASMS
  7. ONDANSETRON [Concomitant]
     Active Substance: ONDANSETRON
     Indication: NAUSEA
  8. SOVALDI [Suspect]
     Active Substance: SOFOSBUVIR
     Indication: HEPATITIS C
     Dosage: UNK
     Route: 065
     Dates: start: 20151119, end: 20160104
  9. METHOTREXATE [Concomitant]
     Active Substance: METHOTREXATE
  10. PROCHLORPERAZINE. [Concomitant]
     Active Substance: PROCHLORPERAZINE
     Indication: NAUSEA
  11. PROCHLORPERAZINE. [Concomitant]
     Active Substance: PROCHLORPERAZINE
     Indication: PAIN
  12. ALBUTEROL                          /00139501/ [Concomitant]
     Active Substance: ALBUTEROL
     Indication: WHEEZING
  13. COLACE [Concomitant]
     Active Substance: DOCUSATE SODIUM
  14. CAFFEINE. [Concomitant]
     Active Substance: CAFFEINE
  15. MIRALAX [Concomitant]
     Active Substance: POLYETHYLENE GLYCOL 3350
     Indication: CONSTIPATION
  16. PROCHLORPERAZINE. [Concomitant]
     Active Substance: PROCHLORPERAZINE
     Indication: VOMITING

REACTIONS (9)
  - Pneumonia [Unknown]
  - Urinary retention [Unknown]
  - Septic shock [Unknown]
  - Rhabdomyolysis [Unknown]
  - Haematemesis [Unknown]
  - Acute kidney injury [Unknown]
  - Abdominal pain [Unknown]
  - Vomiting [Unknown]
  - Cytopenia [Unknown]

NARRATIVE: CASE EVENT DATE: 20151223
